FAERS Safety Report 5996833-0 (Version None)
Quarter: 2008Q4

REPORT INFORMATION
  Report Type: 
  Country: None (occurrence: None)
  Receive Date: 20081212
  Receipt Date: 20081027
  Transmission Date: 20090506
  Serious: No
  Sender: FDA-Public Use
  Company Number: US-ABBOTT-08P-163-0484106-00

PATIENT
  Sex: Male

DRUGS (4)
  1. HUMIRA [Suspect]
     Indication: CROHN'S DISEASE
     Route: 058
     Dates: start: 20081015, end: 20081015
  2. HUMIRA [Suspect]
     Route: 058
     Dates: start: 20081001, end: 20081001
  3. FENTANYL-100 [Concomitant]
     Indication: ARTHRALGIA
     Dosage: 75MCG/HR
     Route: 062
     Dates: start: 20080801
  4. OXYCODONE HCL [Concomitant]
     Indication: BREAKTHROUGH PAIN
     Route: 048
     Dates: start: 20080801

REACTIONS (7)
  - BONE PAIN [None]
  - BRONCHITIS [None]
  - DEHYDRATION [None]
  - NEUTROPHIL COUNT DECREASED [None]
  - RESPIRATORY TRACT CONGESTION [None]
  - VOMITING [None]
  - WHITE BLOOD CELL COUNT DECREASED [None]
